FAERS Safety Report 16253123 (Version 3)
Quarter: 2020Q2

REPORT INFORMATION
  Report Type: Spontaneous
  Country: US (occurrence: US)
  Receive Date: 20190429
  Receipt Date: 20200410
  Transmission Date: 20200713
  Serious: Yes (Disabling)
  Sender: FDA-Public Use
  Company Number: US-SA-2019SA114599

PATIENT
  Sex: Male
  Weight: 72 kg

DRUGS (2)
  1. LANTUS [Suspect]
     Active Substance: INSULIN GLARGINE
     Indication: TYPE 2 DIABETES MELLITUS
     Dosage: UNKNOWN
     Route: 065
  2. TRULICITY [Concomitant]
     Active Substance: DULAGLUTIDE
     Dosage: UNK UNK, UNK
     Route: 065

REACTIONS (3)
  - Unevaluable event [Unknown]
  - Glycosylated haemoglobin increased [Unknown]
  - Cough [Unknown]

NARRATIVE: CASE EVENT DATE: 20190101
